FAERS Safety Report 13422451 (Version 1)
Quarter: 2017Q2

REPORT INFORMATION
  Report Type: Spontaneous
  Country: US (occurrence: US)
  Receive Date: 20170409
  Receipt Date: 20170409
  Transmission Date: 20170830
  Serious: Yes (Death, Hospitalization, Disabling)
  Sender: FDA-Public Use
  Company Number: None

PATIENT
  Age: 60 Year
  Sex: Male
  Weight: 83.25 kg

DRUGS (2)
  1. HALDOL [Suspect]
     Active Substance: HALOPERIDOL
     Indication: DEMENTIA
     Dosage: ?          QUANTITY:1 TABLET(S);?EVERY 12 HOURS ORAL
     Route: 048
     Dates: start: 20150410, end: 20150416
  2. HALDOL [Suspect]
     Active Substance: HALOPERIDOL
     Indication: AGITATION
     Dosage: ?          QUANTITY:1 TABLET(S);?EVERY 12 HOURS ORAL
     Route: 048
     Dates: start: 20150410, end: 20150416

REACTIONS (11)
  - Contraindicated product administered [None]
  - Body temperature increased [None]
  - Unresponsive to stimuli [None]
  - Feeding disorder [None]
  - Communication disorder [None]
  - Decubitus ulcer [None]
  - Muscle rigidity [None]
  - Neuroleptic malignant syndrome [None]
  - Abasia [None]
  - Posture abnormal [None]
  - Impaired self-care [None]

NARRATIVE: CASE EVENT DATE: 20150410
